FAERS Safety Report 8822699 (Version 1)
Quarter: 2012Q4

REPORT INFORMATION
  Report Type: 
  Country: US (occurrence: US)
  Receive Date: 20121003
  Receipt Date: 20121003
  Transmission Date: 20130627
  Serious: Yes (Other)
  Sender: FDA-Public Use
  Company Number: US-MERCK-1208USA010592

PATIENT
  Sex: Male

DRUGS (6)
  1. VICTRELIS [Suspect]
     Indication: HEPATITIS C
     Dosage: UNK
     Dates: start: 20120723
  2. REBETOL [Suspect]
     Indication: HEPATITIS C
     Dosage: UNK
     Dates: start: 20120625
  3. PEGASYS [Suspect]
     Indication: HEPATITIS C
     Dosage: UNK
     Dates: start: 20120625
  4. INSULIN [Concomitant]
     Indication: TYPE 2 DIABETES MELLITUS
  5. CYMBALTA [Concomitant]
     Indication: DEPRESSION
  6. METHADONE HYDROCHLORIDE [Concomitant]
     Indication: PAIN

REACTIONS (4)
  - Thyroid disorder [Unknown]
  - White blood cell count decreased [Unknown]
  - Psychomotor hyperactivity [Unknown]
  - Fatigue [Unknown]
